FAERS Safety Report 12759589 (Version 1)
Quarter: 2016Q3

REPORT INFORMATION
  Report Type: Spontaneous
  Country: US (occurrence: US)
  Receive Date: 20160919
  Receipt Date: 20160919
  Transmission Date: 20161109
  Serious: No
  Sender: FDA-Public Use
  Company Number: US-BAYER-2016-181378

PATIENT
  Age: 45 Year
  Sex: Female

DRUGS (1)
  1. SKYLA [Suspect]
     Active Substance: LEVONORGESTREL
     Dosage: 14 MCG/24HR, CONT
     Route: 015
     Dates: start: 20160916

REACTIONS (4)
  - Complication of device insertion [None]
  - Fatigue [None]
  - Procedural pain [None]
  - Crying [None]

NARRATIVE: CASE EVENT DATE: 20160916
